FAERS Safety Report 23691921 (Version 1)
Quarter: 2024Q2

REPORT INFORMATION
  Report Type: Spontaneous
  Country: US (occurrence: US)
  Receive Date: 20240401
  Receipt Date: 20240401
  Transmission Date: 20240716
  Serious: Yes (Other)
  Sender: FDA-Public Use
  Company Number: US-TEVA-VS-3175979

PATIENT
  Age: 40 Year
  Sex: Male

DRUGS (1)
  1. UZEDY [Suspect]
     Active Substance: RISPERIDONE
     Indication: Schizophrenia
     Dosage: 250/0.7 MG/ML
     Route: 065

REACTIONS (6)
  - Suicidal ideation [Unknown]
  - Homicidal ideation [Unknown]
  - Delusional disorder, unspecified type [Unknown]
  - Thinking abnormal [Unknown]
  - Hallucinations, mixed [Unknown]
  - Eating disorder [Unknown]
